FAERS Safety Report 18769665 (Version 1)
Quarter: 2021Q1

REPORT INFORMATION
  Report Type: Spontaneous
  Country: US (occurrence: US)
  Receive Date: 20210121
  Receipt Date: 20210121
  Transmission Date: 20210419
  Serious: No
  Sender: FDA-Public Use
  Company Number: US-PFIZER INC-2021050808

PATIENT
  Age: 23 Year
  Sex: Female

DRUGS (4)
  1. TOZINAMERAN. [Concomitant]
     Active Substance: TOZINAMERAN
     Indication: ANTIVIRAL PROPHYLAXIS
     Dosage: UNK
     Dates: start: 20201220
  2. IBUPROFEN. [Suspect]
     Active Substance: IBUPROFEN
     Indication: PYREXIA
     Dosage: UNK
  3. ACETAMINOFEN [Suspect]
     Active Substance: ACETAMINOPHEN
     Indication: PYREXIA
  4. TOZINAMERAN. [Concomitant]
     Active Substance: TOZINAMERAN
     Dosage: UNK
     Dates: start: 20210113

REACTIONS (1)
  - Drug ineffective [Recovering/Resolving]

NARRATIVE: CASE EVENT DATE: 20210113
